FAERS Safety Report 9403724 (Version 1)
Quarter: 2013Q3

REPORT INFORMATION
  Report Type: Spontaneous
  Country: US (occurrence: None)
  Receive Date: 20130715
  Receipt Date: 20130715
  Transmission Date: 20140515
  Serious: No
  Sender: FDA-Public Use
  Company Number: None

PATIENT
  Age: 60 Year
  Sex: Female

DRUGS (1)
  1. LIDOCAINE [Suspect]
     Indication: EYE OPERATION
     Dates: start: 20130712, end: 20130712

REACTIONS (3)
  - Product quality issue [None]
  - Pain [None]
  - Drug ineffective [None]
